FAERS Safety Report 9275799 (Version 1)
Quarter: 2013Q2

REPORT INFORMATION
  Report Type: Report from Study
  Country: CA (occurrence: CA)
  Receive Date: 20130507
  Receipt Date: 20130507
  Transmission Date: 20140414
  Serious: Yes (Other)
  Sender: FDA-Public Use
  Company Number: CA-JNJFOC-20130417281

PATIENT
  Age: 46 Year
  Sex: Male
  Weight: 66.2 kg

DRUGS (10)
  1. REMICADE [Suspect]
     Indication: CROHN^S DISEASE
     Route: 042
     Dates: start: 20111103
  2. ADVAIR [Concomitant]
     Indication: MULTIPLE ALLERGIES
     Route: 065
  3. ADVAIR [Concomitant]
     Indication: ASTHMA
     Route: 065
  4. NASONEX [Concomitant]
     Indication: MULTIPLE ALLERGIES
     Route: 065
  5. NASONEX [Concomitant]
     Indication: ASTHMA
     Route: 065
  6. ATIVAN [Concomitant]
     Indication: SLEEP DISORDER
     Route: 065
  7. TECTA [Concomitant]
     Indication: GASTROOESOPHAGEAL REFLUX DISEASE
     Route: 065
  8. PENTASA [Concomitant]
     Indication: CROHN^S DISEASE
     Dosage: 3000 TO 4000 MG PER ORAL ONCE A DAY OR THRICE OR TWICE A DAY
     Route: 048
  9. ENTOCORT [Concomitant]
     Indication: CROHN^S DISEASE
     Route: 065
  10. SOLUCORTEF [Concomitant]
     Indication: PREMEDICATION
     Route: 042

REACTIONS (3)
  - Contusion [Unknown]
  - Nausea [Recovered/Resolved]
  - Vomiting [Recovered/Resolved]
